FAERS Safety Report 10145957 (Version 2)
Quarter: 2014Q2

REPORT INFORMATION
  Report Type: Spontaneous
  Country: US (occurrence: US)
  Receive Date: 20140501
  Receipt Date: 20140527
  Transmission Date: 20141212
  Serious: Yes (Hospitalization)
  Sender: FDA-Public Use
  Company Number: US-BAYER-2014-062924

PATIENT
  Age: 32 Year
  Sex: Female

DRUGS (24)
  1. YASMIN [Suspect]
     Dosage: UNK
     Dates: start: 200702, end: 200709
  2. YAZ [Suspect]
     Dosage: UNK
     Dates: start: 200612, end: 200709
  3. AUGMENTIN [Concomitant]
     Dosage: 875-125 MG BID 7 DAYS
  4. HYDROCODONE W/ACETAMINOPHEN [Concomitant]
     Dosage: 5 MG/ 325 MG ONE TO TWO Q 4-6 H PRN
     Route: 048
  5. PROMETHAZIN [Concomitant]
     Indication: NAUSEA
     Dosage: 12.5 MG, 1 Q 4 TO 6 H PRN
     Route: 048
  6. NAPROXEN [Concomitant]
     Dosage: 500 MG, BID PRN
     Route: 048
  7. MULTIVITAMINS [Concomitant]
  8. VITAMIN B COMPLEX WITH VITAMINS [Concomitant]
  9. LEVOTHYROXINE SODIUM [Concomitant]
     Dosage: 100 MCG/24HR, UNK
     Route: 048
  10. BENICAR HCT [Concomitant]
     Dosage: 20/12.5 MG
  11. TORADOL [Concomitant]
  12. NUBAIN [Concomitant]
  13. ATIVAN [Concomitant]
  14. MORPHINE [Concomitant]
  15. SYNTHROID [Concomitant]
  16. KEPPRA [Concomitant]
  17. DECADRON A [Concomitant]
  18. PHENYTOIN [Concomitant]
  19. PROTONIX [Concomitant]
  20. INSULIN [INSULIN] [Concomitant]
  21. NORCO [Concomitant]
  22. BISACODYL [Concomitant]
  23. MILK OF MAGNESIA [Concomitant]
  24. METFORMIN [Concomitant]

REACTIONS (10)
  - Intracranial venous sinus thrombosis [None]
  - Pain [None]
  - Injury [None]
  - General physical health deterioration [None]
  - Anxiety [None]
  - Emotional distress [None]
  - Pain [None]
  - Cerebrovascular accident [None]
  - Haemorrhagic stroke [None]
  - Fatigue [None]
